FAERS Safety Report 12306402 (Version 2)
Quarter: 2016Q2

REPORT INFORMATION
  Report Type: Report from Study
  Country: JP (occurrence: JP)
  Receive Date: 20160426
  Receipt Date: 20160516
  Transmission Date: 20160815
  Serious: Yes (Other)
  Sender: FDA-Public Use
  Company Number: JP-PFIZER INC-2016225095

PATIENT
  Age: 53 Year
  Sex: Female
  Weight: 62.6 kg

DRUGS (6)
  1. MEROPENEM. [Concomitant]
     Active Substance: MEROPENEM
     Dosage: UNK
     Dates: start: 20160226
  2. VANCOMYCIN [Concomitant]
     Active Substance: VANCOMYCIN
     Dosage: UNK
     Dates: start: 20160311
  3. METRONIDAZOLE. [Suspect]
     Active Substance: METRONIDAZOLE
     Indication: ABDOMINAL ABSCESS
  4. FIRSTCIN [Concomitant]
     Active Substance: CEFOZOPRAN HYDROCHLORIDE
     Dosage: UNK
     Dates: start: 20160309
  5. METRONIDAZOLE. [Suspect]
     Active Substance: METRONIDAZOLE
     Indication: PERITONITIS
     Dosage: 500 MG, 3X/DAY
     Route: 041
     Dates: start: 20160309, end: 20160315
  6. FUNGUARD [Concomitant]
     Active Substance: MICAFUNGIN SODIUM
     Dosage: UNK
     Dates: start: 20160311

REACTIONS (1)
  - Cholecystitis acute [Recovered/Resolved with Sequelae]

NARRATIVE: CASE EVENT DATE: 20160315
